FAERS Safety Report 13373816 (Version 4)
Quarter: 2017Q2

REPORT INFORMATION
  Report Type: Spontaneous
  Country: US (occurrence: US)
  Receive Date: 20170327
  Receipt Date: 20170607
  Transmission Date: 20170830
  Serious: No
  Sender: FDA-Public Use
  Company Number: US-PFIZER INC-2017128534

PATIENT
  Age: 58 Year
  Sex: Female

DRUGS (11)
  1. LYRICA [Suspect]
     Active Substance: PREGABALIN
     Indication: PAIN
     Dosage: 300 MG, DAILY
     Dates: start: 20170515, end: 20170525
  2. LYRICA [Suspect]
     Active Substance: PREGABALIN
     Indication: DIABETIC NEUROPATHY
     Dosage: 200 MG, 3X/DAY
     Dates: start: 20170515
  3. NOVOLOG [Concomitant]
     Active Substance: INSULIN ASPART
     Dosage: UNK
     Dates: start: 1987
  4. TOVIAZ [Suspect]
     Active Substance: FESOTERODINE FUMARATE
     Dosage: UNK
  5. NOVOLIN N [Concomitant]
     Active Substance: INSULIN HUMAN
     Dosage: UNK
     Dates: start: 1987
  6. METHADONE [Suspect]
     Active Substance: METHADONE HYDROCHLORIDE
     Indication: PAIN
     Dosage: 10 MG, 4X/DAY
     Dates: start: 2012
  7. TOPAMAX [Suspect]
     Active Substance: TOPIRAMATE
     Indication: PAIN
     Dosage: 100 MG, 2X/DAY
     Dates: start: 2012
  8. TOPAMAX [Suspect]
     Active Substance: TOPIRAMATE
     Indication: DIABETIC NEUROPATHY
  9. METHADONE [Suspect]
     Active Substance: METHADONE HYDROCHLORIDE
     Indication: DIABETIC NEUROPATHY
  10. HUMALOG [Concomitant]
     Active Substance: INSULIN LISPRO
     Dosage: UNK
     Dates: start: 1987
  11. GABAPENTIN. [Suspect]
     Active Substance: GABAPENTIN
     Indication: DIABETIC NEUROPATHY
     Dosage: 1600 MG, 2X/DAY [800 MG TABS, 2 TWICE A DAY (3200 MG)]
     Dates: start: 2014, end: 201705

REACTIONS (2)
  - Amnesia [Unknown]
  - Drug effect incomplete [Not Recovered/Not Resolved]
